FAERS Safety Report 19092022 (Version 2)
Quarter: 2021Q2

REPORT INFORMATION
  Report Type: Spontaneous
  Country: DE (occurrence: DE)
  Receive Date: 20210405
  Receipt Date: 20210519
  Transmission Date: 20210717
  Serious: Yes (Other)
  Sender: FDA-Public Use
  Company Number: DE-PFIZER INC-2021310858

PATIENT
  Age: 50 Year
  Sex: Female

DRUGS (2)
  1. PLERIXAFOR [Concomitant]
     Active Substance: PLERIXAFOR
     Dosage: 0.24 MILLIGRAM/KILOGRAM, QD
     Route: 058
  2. FILGRASTIM [Suspect]
     Active Substance: FILGRASTIM
     Indication: HAEMATOPOIETIC STEM CELL MOBILISATION
     Dosage: 10 UG/KG, 1X/DAY
     Route: 058

REACTIONS (4)
  - Hypokalaemia [Unknown]
  - Hypocalcaemia [Unknown]
  - CD34 cell count decreased [Unknown]
  - Treatment failure [Unknown]
